FAERS Safety Report 24144794 (Version 4)
Quarter: 2024Q3

REPORT INFORMATION
  Report Type: Report from Study
  Country: BR (occurrence: BR)
  Receive Date: 20240729
  Receipt Date: 20240810
  Transmission Date: 20241017
  Serious: Yes (Disabling)
  Sender: ABBVIE
  Company Number: BR-ABBVIE-5854447

PATIENT
  Age: 61 Year
  Sex: Female

DRUGS (8)
  1. RINVOQ [Suspect]
     Active Substance: UPADACITINIB
     Indication: Rheumatoid arthritis
     Dosage: FORM STRENGTH: 15MG
     Route: 048
     Dates: start: 202404, end: 20240717
  2. CAFFEINE\DIPYRONE\ORPHENADRINE [Concomitant]
     Active Substance: CAFFEINE\DIPYRONE\ORPHENADRINE
     Indication: Arthralgia
     Route: 048
     Dates: start: 2016
  3. DIPYRONE [Concomitant]
     Active Substance: DIPYRONE
     Indication: Arthralgia
     Route: 048
     Dates: start: 2016
  4. LOSARTAN [Concomitant]
     Active Substance: LOSARTAN\LOSARTAN POTASSIUM
     Indication: Hypertension
     Dosage: FORM STRENGTH: 50 MILLIGRAM
     Route: 048
     Dates: start: 2019
  5. DORZOLAMIDE HYDROCHLORIDE [Concomitant]
     Active Substance: DORZOLAMIDE HYDROCHLORIDE
     Indication: Glaucoma
     Dosage: 2%, 5ML
     Route: 047
     Dates: start: 2016
  6. IBUPROFEN [Concomitant]
     Active Substance: IBUPROFEN
     Indication: Arthralgia
     Route: 048
     Dates: start: 2016
  7. AMLODIPINE [Concomitant]
     Active Substance: AMLODIPINE BESYLATE
     Indication: Hypertension
     Dosage: FORM STRENGTH: 5 MG
     Route: 048
     Dates: start: 2019
  8. VITAMIN D [Concomitant]
     Active Substance: VITAMIN D NOS
     Indication: Product used for unknown indication
     Dosage: FREQUENCY TEXT: SPORADICALLY

REACTIONS (11)
  - Musculoskeletal disorder [Unknown]
  - Loss of personal independence in daily activities [Not Recovered/Not Resolved]
  - Motor dysfunction [Not Recovered/Not Resolved]
  - Insomnia [Not Recovered/Not Resolved]
  - Therapeutic product effect delayed [Recovered/Resolved]
  - Gait inability [Not Recovered/Not Resolved]
  - Impaired quality of life [Unknown]
  - Pain [Not Recovered/Not Resolved]
  - Rheumatoid arthritis [Not Recovered/Not Resolved]
  - Immobile [Not Recovered/Not Resolved]
  - Therapeutic product effect decreased [Unknown]

NARRATIVE: CASE EVENT DATE: 20240101
